FAERS Safety Report 8096778-9 (Version None)
Quarter: 2012Q1

REPORT INFORMATION
  Report Type: 
  Country: None (occurrence: None)
  Receive Date: 20120129
  Receipt Date: 20111103
  Transmission Date: 20120608
  Serious: No
  Sender: FDA-Public Use
  Company Number: US-ABBOTT-11P-163-0862111-00

PATIENT
  Sex: Male
  Weight: 63.106 kg

DRUGS (4)
  1. HUMIRA [Suspect]
     Dates: start: 20110927, end: 20110927
  2. HUMIRA [Suspect]
     Dates: start: 20111011
  3. APRISO [Concomitant]
     Indication: CROHN'S DISEASE
  4. HUMIRA [Suspect]
     Indication: CROHN'S DISEASE
     Dosage: LOADING DOSE
     Dates: start: 20110913, end: 20110913

REACTIONS (5)
  - RASH PRURITIC [None]
  - RASH [None]
  - ABNORMAL FAECES [None]
  - HAEMATOCHEZIA [None]
  - DIARRHOEA [None]
